FAERS Safety Report 17163307 (Version 3)
Quarter: 2019Q4

REPORT INFORMATION
  Report Type: Spontaneous
  Country: JP (occurrence: JP)
  Receive Date: 20191217
  Receipt Date: 20191230
  Transmission Date: 20200122
  Serious: Yes (Other)
  Sender: FDA-Public Use
  Company Number: JP-UCBSA-2019053686

PATIENT
  Sex: Female
  Weight: 45.9 kg

DRUGS (1)
  1. CIMZIA [Suspect]
     Active Substance: CERTOLIZUMAB PEGOL
     Indication: RHEUMATOID ARTHRITIS
     Dosage: 200 MILLIGRAM, EV 2 WEEKS(QOW)
     Route: 058
     Dates: start: 20190122, end: 20191115

REACTIONS (2)
  - Maternal exposure during breast feeding [Unknown]
  - Breast cancer [Unknown]

NARRATIVE: CASE EVENT DATE: 2019
